FAERS Safety Report 9876042 (Version 1)
Quarter: 2014Q1

REPORT INFORMATION
  Report Type: Spontaneous
  Country: IT (occurrence: None)
  Receive Date: 20140204
  Receipt Date: 20140204
  Transmission Date: 20141002
  Serious: Yes (Life-Threatening, Hospitalization)
  Sender: FDA-Public Use
  Company Number: 2014P1000393

PATIENT
  Age: 40 Year
  Sex: Male
  Weight: 110 kg

DRUGS (5)
  1. RISPERIDONE [Suspect]
     Dosage: ;X1 ;PO
     Route: 048
  2. PHENOBARBITAL [Suspect]
     Dosage: ; X1; PO
     Route: 048
  3. LORAZEPAM [Suspect]
     Dosage: ; X!; PO
     Route: 048
  4. CLOTIAZEPAM [Suspect]
     Dosage: ; X1; PO
     Route: 048
  5. BISOPROLOL [Suspect]
     Dosage: ; X!; PO
     Route: 048

REACTIONS (5)
  - Suicide attempt [None]
  - Stress cardiomyopathy [None]
  - Coma [None]
  - Respiratory acidosis [None]
  - Ventricular hypokinesia [None]
